FAERS Safety Report 9552032 (Version 3)
Quarter: 2013Q4

REPORT INFORMATION
  Report Type: Report from Study
  Country: NL (occurrence: NL)
  Receive Date: 20130925
  Receipt Date: 20131219
  Transmission Date: 20140711
  Serious: Yes (Hospitalization)
  Sender: FDA-Public Use
  Company Number: PHHY2013NL105168

PATIENT
  Age: 46 Year
  Sex: Male

DRUGS (4)
  1. SANDOSTATIN LAR [Suspect]
     Indication: MACULAR OEDEMA
     Dosage: 30 MG, PER 2 ML, ONCE EVERY 4 WEEKS
     Route: 030
     Dates: start: 201307
  2. SANDOSTATIN LAR [Suspect]
     Indication: OFF LABEL USE
     Dosage: 30 MG, PER 2 ML, ONCE EVERY 4 WEEKS
     Route: 030
     Dates: start: 20130822
  3. SANDOSTATIN LAR [Suspect]
     Dosage: 30 MG, PER 2 ML, ONCE EVERY 4 WEEKS
     Route: 030
     Dates: start: 20130919
  4. IBUPROFEN [Concomitant]
     Dosage: UNK

REACTIONS (4)
  - Joint injury [Recovered/Resolved]
  - Accident [Unknown]
  - Diarrhoea [Recovered/Resolved]
  - Abdominal pain upper [Recovered/Resolved]
